FAERS Safety Report 5485098-4 (Version None)
Quarter: 2007Q4

REPORT INFORMATION
  Report Type: 
  Country: None (occurrence: None)
  Receive Date: 20071015
  Receipt Date: 20071003
  Transmission Date: 20080405
  Serious: Yes (Death, Life-Threatening)
  Sender: FDA-Public Use
  Company Number: CA-JNJFOC-20070602749

PATIENT
  Sex: Male
  Weight: 51.26 kg

DRUGS (6)
  1. TMC114 [Suspect]
     Route: 048
  2. TMC114 [Suspect]
     Indication: HIV INFECTION
     Dosage: PERMANENT STOP
     Route: 048
  3. TYLENOL W/ CODEINE NO. 3 [Suspect]
     Indication: DRUG USE FOR UNKNOWN INDICATION
     Route: 065
  4. RITONAVIR [Suspect]
     Indication: HIV INFECTION
     Route: 048
  5. COCAINE [Suspect]
     Indication: DRUG USE FOR UNKNOWN INDICATION
     Route: 065
  6. KIVEXA [Concomitant]
     Indication: HIV INFECTION
     Route: 048

REACTIONS (1)
  - MULTIPLE DRUG OVERDOSE ACCIDENTAL [None]
